FAERS Safety Report 16152539 (Version 1)
Quarter: 2019Q2

REPORT INFORMATION
  Report Type: Spontaneous
  Country: DE (occurrence: DE)
  Receive Date: 20190403
  Receipt Date: 20190403
  Transmission Date: 20190711
  Serious: Yes (Other)
  Sender: FDA-Public Use
  Company Number: DE-GLAXOSMITHKLINE-DE2019GSK055887

PATIENT
  Age: 46 Year
  Sex: Male

DRUGS (2)
  1. ACYCLOVIR. [Suspect]
     Active Substance: ACYCLOVIR
     Indication: RETINAL VASCULITIS
     Dosage: 900 MG, TID (FOR 16 DAYS)
     Route: 042
  2. ACYCLOVIR. [Suspect]
     Active Substance: ACYCLOVIR
     Indication: RETINITIS
     Dosage: 800 MG, BID
     Route: 048

REACTIONS (2)
  - Disease progression [Recovering/Resolving]
  - Necrotising retinitis [Recovering/Resolving]
